FAERS Safety Report 7804853-6 (Version None)
Quarter: 2011Q4

REPORT INFORMATION
  Report Type: 
  Country: None (occurrence: None)
  Receive Date: 20111010
  Receipt Date: 20110929
  Transmission Date: 20120403
  Serious: Yes (Hospitalization, Other)
  Sender: FDA-Public Use
  Company Number: US-BAYER-201016359NA

PATIENT
  Age: 28 Year
  Sex: Female
  Weight: 62.585 kg

DRUGS (14)
  1. YASMIN [Suspect]
  2. ACCUTANE [Concomitant]
     Indication: ACNE
     Dosage: UNK
     Route: 003
     Dates: start: 20070801, end: 20080101
  3. YASMIN [Suspect]
     Indication: PREMENSTRUAL SYNDROME
  4. ADDERALL 5 [Concomitant]
     Indication: PRODUCT USED FOR UNKNOWN INDICATION
     Dosage: 20 MG, UNK
     Route: 048
  5. METHYLPREDNISOLONE [Concomitant]
     Dosage: UNK
     Route: 048
  6. YAZ [Suspect]
     Indication: CONTRACEPTION
     Dosage: 1 DF, QD
     Route: 048
     Dates: start: 20070501, end: 20100901
  7. YAZ [Suspect]
     Indication: PREMENSTRUAL SYNDROME
  8. LORAZEPAM [Concomitant]
     Dosage: 2 MG, UNK
     Route: 048
  9. LORAZEPAM [Concomitant]
     Indication: PRODUCT USED FOR UNKNOWN INDICATION
     Dosage: 0.5 MG, UNK
     Route: 048
  10. PROZAC [Concomitant]
     Dosage: 10 MG, TID
  11. HYDROCODONE BITARTRATE [Concomitant]
     Route: 048
  12. YASMIN [Suspect]
     Indication: CONTRACEPTION
     Dosage: UNK
     Route: 048
     Dates: start: 20070501, end: 20100901
  13. FLUOXETINE [Concomitant]
     Indication: PRODUCT USED FOR UNKNOWN INDICATION
     Dosage: DAILY DOSE 80 MG
     Route: 048
  14. YAZ [Suspect]

REACTIONS (10)
  - CHEST PAIN [None]
  - NAUSEA [None]
  - MYOCARDIAL INFARCTION [None]
  - DIZZINESS [None]
  - ACUTE MYOCARDIAL INFARCTION [None]
  - PAIN IN EXTREMITY [None]
  - PAIN IN JAW [None]
  - HEART INJURY [None]
  - PAIN [None]
  - HYPERHIDROSIS [None]
